FAERS Safety Report 22641064 (Version 1)
Quarter: 2023Q2

REPORT INFORMATION
  Report Type: Spontaneous
  Country: US (occurrence: US)
  Receive Date: 20230626
  Receipt Date: 20230626
  Transmission Date: 20230721
  Serious: No
  Sender: FDA-Public Use
  Company Number: US-ELI_LILLY_AND_COMPANY-US202306013230

PATIENT
  Sex: Male

DRUGS (2)
  1. TRULICITY [Suspect]
     Active Substance: DULAGLUTIDE
     Indication: Product used for unknown indication
     Dosage: 0.75 MG, UNKNOWN
     Route: 065
  2. DUPIXENT [Concomitant]
     Active Substance: DUPILUMAB
     Indication: Eczema
     Dosage: UNK, OTHER (EVERY 2 WEEKS)

REACTIONS (4)
  - Vocal cord disorder [Unknown]
  - Injection site haemorrhage [Recovered/Resolved]
  - Vomiting [Unknown]
  - Abdominal discomfort [Unknown]
